FAERS Safety Report 13034725 (Version 1)
Quarter: 2016Q4

REPORT INFORMATION
  Report Type: Spontaneous
  Country: US (occurrence: US)
  Receive Date: 20161215
  Receipt Date: 20161215
  Transmission Date: 20170207
  Serious: No
  Sender: FDA-Public Use
  Company Number: None

PATIENT
  Age: 17 Year
  Sex: Female

DRUGS (1)
  1. GILDESS FE 1.5/30 [Suspect]
     Active Substance: ETHINYL ESTRADIOL\NORETHINDRONE ACETATE
     Indication: POLYCYSTIC OVARIES
     Dosage: DOSE - 1.5/30 DF
     Route: 048
     Dates: start: 201609, end: 201612

REACTIONS (2)
  - Product quality issue [None]
  - Product packaging quantity issue [None]

NARRATIVE: CASE EVENT DATE: 20160928
